FAERS Safety Report 4925409-9 (Version None)
Quarter: 2006Q1

REPORT INFORMATION
  Report Type: 
  Country: None (occurrence: None)
  Receive Date: 20060228
  Receipt Date: 20050215
  Transmission Date: 20060701
  Serious: No
  Sender: FDA-Public Use
  Company Number: US-GLAXOSMITHKLINE-A0545709A

PATIENT
  Age: 51 Year
  Sex: Male

DRUGS (3)
  1. LAMICTAL [Suspect]
     Indication: BIPOLAR DISORDER
     Dosage: 100MG PER DAY
     Route: 048
  2. PAROXETINE HCL [Concomitant]
     Indication: BIPOLAR DISORDER
     Dosage: 40MG PER DAY
     Route: 048
     Dates: start: 20051001
  3. SEROQUEL [Concomitant]

REACTIONS (3)
  - APATHY [None]
  - FLATULENCE [None]
  - TINNITUS [None]
